FAERS Safety Report 10725356 (Version 3)
Quarter: 2015Q2

REPORT INFORMATION
  Report Type: Spontaneous
  Country: JP (occurrence: JP)
  Receive Date: 20150121
  Receipt Date: 20150415
  Transmission Date: 20150821
  Serious: Yes (Hospitalization)
  Sender: FDA-Public Use
  Company Number: JP-ABBVIE-15K-087-1334363-00

PATIENT
  Age: 45 Year
  Sex: Male
  Weight: 64 kg

DRUGS (1)
  1. HUMIRA [Suspect]
     Active Substance: ADALIMUMAB
     Indication: PSORIATIC ARTHROPATHY
     Route: 058
     Dates: start: 20141024, end: 20150102

REACTIONS (7)
  - Tenderness [Unknown]
  - Rash pustular [Unknown]
  - Skin haemorrhage [Unknown]
  - Lymphadenopathy [Unknown]
  - Submaxillary gland enlargement [Recovered/Resolved]
  - Pustular psoriasis [Unknown]
  - Paradoxical drug reaction [Recovered/Resolved]

NARRATIVE: CASE EVENT DATE: 201501
